FAERS Safety Report 10036416 (Version 2)
Quarter: 2014Q1

REPORT INFORMATION
  Report Type: Spontaneous
  Country: US (occurrence: US)
  Receive Date: 20140325
  Receipt Date: 20140325
  Transmission Date: 20141002
  Serious: Yes (Other)
  Sender: FDA-Public Use
  Company Number: US-GE HEALTHCARE MEDICAL DIAGNOSTICS-OSCN-PR-1002S-0035

PATIENT
  Sex: Male
  Weight: 160.91 kg

DRUGS (4)
  1. GADOLINIUM (UNSPECIFIED) [Suspect]
     Indication: JOINT INJURY
     Route: 042
     Dates: start: 20040811, end: 20040811
  2. MAGNEVIST [Suspect]
     Indication: RENAL MASS
     Route: 042
     Dates: start: 20010302, end: 20010302
  3. MAGNEVIST [Suspect]
     Route: 042
     Dates: start: 20040329, end: 20040329
  4. OPTIMARK [Suspect]
     Indication: MUSCLE SPASMS
     Route: 042
     Dates: start: 20060222, end: 20060222

REACTIONS (1)
  - Nephrogenic systemic fibrosis [Not Recovered/Not Resolved]
